FAERS Safety Report 22974122 (Version 6)
Quarter: 2024Q4

REPORT INFORMATION
  Report Type: Report from Study
  Country: JP (occurrence: JP)
  Receive Date: 20230923
  Receipt Date: 20241231
  Transmission Date: 20250114
  Serious: Yes (Hospitalization, Other)
  Sender: ROCHE
  Company Number: JP-CHUGAI-2023021982

PATIENT
  Age: 51 Year
  Sex: Male
  Weight: 74.2 kg

DRUGS (12)
  1. VABYSMO [Suspect]
     Active Substance: FARICIMAB-SVOA
     Indication: Diabetic retinal oedema
     Dosage: 6 MG, ONCE EVERY TWO MONTHS, EYE OF ADMINISTRATION: RIGHT EYE 120 MG/ML
     Route: 050
     Dates: start: 20230124, end: 20230124
  2. VABYSMO [Suspect]
     Active Substance: FARICIMAB-SVOA
     Dosage: 6 MG, ONCE EVERY TWO MONTHS, EYE OF ADMINISTRATION: LEFT EYE, 120 MG/ML
     Route: 050
     Dates: start: 20230322
  3. VABYSMO [Suspect]
     Active Substance: FARICIMAB-SVOA
     Dosage: LEFT EYE
     Route: 050
     Dates: start: 20230506
  4. VABYSMO [Suspect]
     Active Substance: FARICIMAB-SVOA
     Dosage: LEFT EYE
     Route: 050
     Dates: start: 20231108
  5. VABYSMO [Suspect]
     Active Substance: FARICIMAB-SVOA
     Dosage: 6 MG, ONCE EVERY TWO MONTHS, EYE OF ADMINISTRATION: RIGHT EYE
     Route: 050
     Dates: start: 20240304
  6. VABYSMO [Suspect]
     Active Substance: FARICIMAB-SVOA
     Dosage: 6 MG, ONCE EVERY TWO MONTHS, EYE OF ADMINISTRATION: RIGHT EYE
     Route: 050
     Dates: start: 20240603
  7. EYLEA [Suspect]
     Active Substance: AFLIBERCEPT
     Indication: Diabetic retinal oedema
     Dosage: 2 MG/DAY X SEVEN TIMES
     Route: 065
     Dates: start: 20220128, end: 20221109
  8. JARDIANCE [Concomitant]
     Active Substance: EMPAGLIFLOZIN
     Route: 048
  9. RYBELSUS [Concomitant]
     Active Substance: SEMAGLUTIDE
     Route: 048
  10. AZILSARTAN KAMEDOXOMIL [Concomitant]
     Active Substance: AZILSARTAN KAMEDOXOMIL
     Route: 048
  11. ADALAT [Concomitant]
     Active Substance: NIFEDIPINE
     Route: 048
  12. ROSUVASTATIN CALCIUM [Concomitant]
     Active Substance: ROSUVASTATIN CALCIUM
     Route: 048

REACTIONS (3)
  - Cardiac failure congestive [Recovered/Resolved]
  - Acute myocardial infarction [Recovered/Resolved]
  - Restenosis [Unknown]

NARRATIVE: CASE EVENT DATE: 20230423
